FAERS Safety Report 5704562-3 (Version None)
Quarter: 2008Q2

REPORT INFORMATION
  Report Type: 
  Country: None (occurrence: None)
  Receive Date: 20080411
  Receipt Date: 20080411
  Transmission Date: 20081010
  Serious: Yes (Hospitalization)
  Sender: FDA-Public Use
  Company Number: None

PATIENT
  Age: 19 Year
  Sex: Male
  Weight: 63.5036 kg

DRUGS (2)
  1. PROMETHAZINE HCL [Suspect]
     Indication: NAUSEA
     Dosage: 25 MG  1 TIME  IM
     Route: 030
     Dates: start: 20080402
  2. PROMETHAZINE HCL [Suspect]
     Indication: VOMITING
     Dosage: 25 MG  1 TIME  IM
     Route: 030
     Dates: start: 20080402

REACTIONS (1)
  - HYPOTENSION [None]
